FAERS Safety Report 7321159-2 (Version None)
Quarter: 2011Q1

REPORT INFORMATION
  Report Type: 
  Country: None (occurrence: None)
  Receive Date: 20110228
  Receipt Date: 20110223
  Transmission Date: 20110831
  Serious: Yes (Death)
  Sender: FDA-Public Use
  Company Number: FR-JNJFOC-20110206871

PATIENT
  Age: 43 Year
  Sex: Male

DRUGS (7)
  1. DURAGESIC-100 [Suspect]
     Indication: CANCER PAIN
     Route: 062
     Dates: start: 20101013
  2. DURAGESIC-100 [Suspect]
     Dosage: FOR 28 DAYS
     Route: 062
     Dates: start: 20101013
  3. DURAGESIC-100 [Suspect]
     Dosage: FOR 1 MONTH
     Route: 062
     Dates: start: 20101013
  4. XELODA [Concomitant]
     Indication: PRODUCT USED FOR UNKNOWN INDICATION
     Route: 065
  5. ACTIQ [Suspect]
     Indication: CANCER PAIN
     Dates: start: 20101218, end: 20101218
  6. ACTISKENAN [Suspect]
     Dosage: FOR 25 DAYS
     Route: 048
     Dates: start: 20101013
  7. ACTISKENAN [Suspect]
     Indication: CANCER PAIN
     Dosage: FOR ONE MONTH
     Route: 048
     Dates: start: 20101013

REACTIONS (1)
  - DISEASE PROGRESSION [None]
